FAERS Safety Report 14645839 (Version 2)
Quarter: 2018Q2

REPORT INFORMATION
  Report Type: Spontaneous
  Country: CU (occurrence: CU)
  Receive Date: 20180316
  Receipt Date: 20180403
  Transmission Date: 20180711
  Serious: Yes (Death, Hospitalization)
  Sender: FDA-Public Use
  Company Number: CU-ROCHE-2085378

PATIENT
  Sex: Female

DRUGS (2)
  1. AVASTIN [Suspect]
     Active Substance: BEVACIZUMAB
     Indication: COLORECTAL CANCER METASTATIC
     Route: 065
  2. XELODA [Suspect]
     Active Substance: CAPECITABINE
     Indication: COLORECTAL CANCER METASTATIC
     Dosage: FOR 14 DAYS AND REST FOR 7 DAYS
     Route: 048

REACTIONS (1)
  - Hypertensive crisis [Fatal]
